FAERS Safety Report 5839942-9 (Version None)
Quarter: 2008Q3

REPORT INFORMATION
  Report Type: 
  Country: None (occurrence: None)
  Receive Date: 20080808
  Receipt Date: 20080808
  Transmission Date: 20090109
  Serious: Yes (Other)
  Sender: FDA-Public Use
  Company Number: None

PATIENT
  Sex: Male
  Weight: 27.5 kg

DRUGS (1)
  1. WINRHO [Suspect]
     Indication: IDIOPATHIC THROMBOCYTOPENIC PURPURA
     Dosage: 2000MCG X1 IV BOLUS
     Route: 040
     Dates: start: 20080726, end: 20080726

REACTIONS (4)
  - CHILLS [None]
  - HAEMATURIA [None]
  - HAEMOGLOBIN DECREASED [None]
  - PYREXIA [None]
